FAERS Safety Report 6182481-9 (Version None)
Quarter: 2009Q2

REPORT INFORMATION
  Report Type: 
  Country: None (occurrence: None)
  Receive Date: 20090507
  Receipt Date: 20090423
  Transmission Date: 20091009
  Serious: Yes (Death, Hospitalization)
  Sender: FDA-Public Use
  Company Number: FR-ROCHE-629326

PATIENT
  Sex: Male

DRUGS (3)
  1. CAPECITABINE [Suspect]
     Route: 065
     Dates: start: 20060828
  2. EPIRUBICIN HCL [Suspect]
     Route: 065
     Dates: start: 20060828
  3. CISPLATIN [Suspect]
     Route: 065
     Dates: start: 20080828

REACTIONS (4)
  - ENTEROCOLITIS [None]
  - FEBRILE NEUTROPENIA [None]
  - GENERAL PHYSICAL HEALTH DETERIORATION [None]
  - SEPTIC SHOCK [None]
